FAERS Safety Report 12994837 (Version 1)
Quarter: 2016Q4

REPORT INFORMATION
  Report Type: Other
  Country: None (occurrence: US)
  Receive Date: 20161202
  Receipt Date: 20161202
  Transmission Date: 20170207
  Serious: Yes (Other)
  Sender: FDA-Public Use
  Company Number: US-GUTHY-RENKER LLC-1060339

PATIENT
  Age: 49 Year
  Sex: Female

DRUGS (3)
  1. VICTOZA, JANUVIA, METFORMIN, EFFEXOR, ADVAIR, SIMBICORT [Concomitant]
  2. MEANINGFUL BEAUTY WELLNESS DIETARY SUPPLEMENT 30 DAY [Suspect]
     Active Substance: MINERALS\VITAMINS
     Indication: DRUG THERAPY
     Route: 048
     Dates: start: 20150420, end: 20150520
  3. ALBUTEROL, ^WATER PILL^, USES OXYGEN FOR COPD [Concomitant]

REACTIONS (3)
  - Nausea [None]
  - Blood creatinine increased [None]
  - Vomiting [Recovered/Resolved]

NARRATIVE: CASE EVENT DATE: 20150520
